FAERS Safety Report 9580160 (Version 1)
Quarter: 2013Q3

REPORT INFORMATION
  Report Type: Spontaneous
  Country: US (occurrence: None)
  Receive Date: 20130916
  Receipt Date: 20130916
  Transmission Date: 20140515
  Serious: Yes (Other)
  Sender: FDA-Public Use
  Company Number: JPI-P-030315

PATIENT
  Age: 29 Year
  Sex: Female
  Weight: 58.06 kg

DRUGS (5)
  1. XYREM [Suspect]
     Indication: CATAPLEXY
     Dosage: 4.5 GM (2.25 GM, 2 IN 1 D), ORAL
     Route: 048
     Dates: start: 20130221
  2. XYREM [Suspect]
     Indication: SOMNOLENCE
     Dosage: 4.5 GM (2.25 GM, 2 IN 1 D), ORAL
     Route: 048
     Dates: start: 20130221
  3. DESVENLAFAXINE [Concomitant]
  4. QUETIAPINE FUMARATE [Concomitant]
  5. LUBIPROSTONE [Concomitant]

REACTIONS (5)
  - Blood pressure increased [None]
  - Hunger [None]
  - Feeling jittery [None]
  - Nausea [None]
  - Headache [None]
